FAERS Safety Report 6978208-0 (Version None)
Quarter: 2010Q3

REPORT INFORMATION
  Report Type: 
  Country: None (occurrence: None)
  Receive Date: 20100913
  Receipt Date: 20100831
  Transmission Date: 20110219
  Serious: Yes (Hospitalization)
  Sender: FDA-Public Use
  Company Number: FR-ELI_LILLY_AND_COMPANY-FR201008008690

PATIENT
  Sex: Male

DRUGS (6)
  1. ZYPREXA [Suspect]
     Dosage: 5 MG, DAILY (1/D)
     Route: 048
     Dates: start: 20100630, end: 20100810
  2. MODOPAR [Concomitant]
     Indication: PARKINSONISM
     Dosage: 125 MG, DAILY (1/D)
     Route: 048
     Dates: start: 20100702
  3. TRIATEC [Concomitant]
     Dosage: 2.5 MG, DAILY (1/D)
     Route: 048
     Dates: start: 20100722
  4. CREON [Concomitant]
     Route: 048
     Dates: start: 20100725
  5. LASIX [Concomitant]
     Dosage: 20 MG, DAILY (1/D)
     Route: 048
     Dates: start: 20100723
  6. SEROPLEX [Concomitant]

REACTIONS (7)
  - AGRANULOCYTOSIS [None]
  - CACHEXIA [None]
  - CARDIAC FAILURE ACUTE [None]
  - ESCHERICHIA SEPSIS [None]
  - GENERAL PHYSICAL HEALTH DETERIORATION [None]
  - RESPIRATORY DISTRESS [None]
  - URINARY RETENTION [None]
